FAERS Safety Report 6663458-3 (Version None)
Quarter: 2010Q2

REPORT INFORMATION
  Report Type: 
  Country: None (occurrence: None)
  Receive Date: 20100401
  Receipt Date: 20100322
  Transmission Date: 20101027
  Serious: Yes (Other)
  Sender: FDA-Public Use
  Company Number: US-PFIZER INC-2010037560

PATIENT
  Sex: Male

DRUGS (1)
  1. CHANTIX [Suspect]
     Indication: SMOKING CESSATION THERAPY
     Dosage: UNK
     Route: 048
     Dates: start: 20071109, end: 20080227

REACTIONS (4)
  - ACCIDENT [None]
  - FACIAL BONES FRACTURE [None]
  - LOSS OF CONSCIOUSNESS [None]
  - MENTAL DISORDER [None]
